FAERS Safety Report 24378036 (Version 1)
Quarter: 2024Q3

REPORT INFORMATION
  Report Type: Spontaneous
  Country: KR (occurrence: KR)
  Receive Date: 20240930
  Receipt Date: 20240930
  Transmission Date: 20241017
  Serious: Yes (Hospitalization)
  Sender: CHEPLAPHARM
  Company Number: KR-ROCHE-10000082338

PATIENT
  Age: 54 Year
  Sex: Female
  Weight: 49.5 kg

DRUGS (4)
  1. CAPECITABINE [Suspect]
     Active Substance: CAPECITABINE
     Indication: Breast cancer
     Dosage: DAILY DOSE: 4600 MILLIGRAM
     Route: 048
     Dates: start: 20170720
  2. PERTUZUMAB [Suspect]
     Active Substance: PERTUZUMAB
     Indication: Breast cancer
     Dosage: ON 13/AUG/2024, RECEIVED MOST RECENT DOSE PRIOR TO AE.
     Route: 042
     Dates: start: 20170720
  3. PERTUZUMAB [Suspect]
     Active Substance: PERTUZUMAB
     Indication: Breast cancer
     Dosage: ON 13/AUG/2024, RECEIVED MOST RECENT DOSE PRIOR TO AE.
     Route: 042
     Dates: start: 20240813
  4. TRASTUZUMAB [Suspect]
     Active Substance: TRASTUZUMAB
     Indication: Breast cancer
     Route: 042
     Dates: start: 20170720

REACTIONS (2)
  - Pulmonary mass [Not Recovered/Not Resolved]
  - Benign neoplasm [Not Recovered/Not Resolved]

NARRATIVE: CASE EVENT DATE: 20240906
